FAERS Safety Report 5951248-6 (Version None)
Quarter: 2008Q4

REPORT INFORMATION
  Report Type: 
  Country: None (occurrence: None)
  Receive Date: 20081022
  Receipt Date: 20080820
  Transmission Date: 20090506
  Serious: No
  Sender: FDA-Public Use
  Company Number: SPV1-2008-01801

PATIENT
  Age: 8 Year
  Sex: Male
  Weight: 28.1 kg

DRUGS (1)
  1. VYVANSE [Suspect]
     Indication: ATTENTION DEFICIT/HYPERACTIVITY DISORDER
     Dosage: /1X/DAY: QD, ORAL
     Route: 048
     Dates: start: 20080816

REACTIONS (2)
  - ABNORMAL BEHAVIOUR [None]
  - NERVOUSNESS [None]
